FAERS Safety Report 8888100 (Version 1)
Quarter: 2012Q4

REPORT INFORMATION
  Report Type: 
  Country: US (occurrence: US)
  Receive Date: 20121106
  Receipt Date: 20121106
  Transmission Date: 20130627
  Serious: Yes (Other)
  Sender: FDA-Public Use
  Company Number: US-BRISTOL-MYERS SQUIBB COMPANY-17076340

PATIENT
  Age: 32 Year
  Sex: Male

DRUGS (1)
  1. ORENCIA [Suspect]
     Dosage: Last inf: 19Oct12
     Route: 042

REACTIONS (1)
  - Road traffic accident [Unknown]
